FAERS Safety Report 9201550 (Version 1)
Quarter: 2013Q2

REPORT INFORMATION
  Report Type: Spontaneous
  Country: JP (occurrence: JP)
  Receive Date: 20130401
  Receipt Date: 20130401
  Transmission Date: 20140414
  Serious: Yes (Other)
  Sender: FDA-Public Use
  Company Number: JP-UCBSA-081816

PATIENT
  Age: 41 Year
  Sex: Female

DRUGS (1)
  1. XYZAL [Suspect]
     Route: 048
     Dates: start: 2013, end: 2013

REACTIONS (2)
  - Erythema multiforme [Recovered/Resolved]
  - Erythema [Recovered/Resolved]
